FAERS Safety Report 17305437 (Version 1)
Quarter: 2020Q1

REPORT INFORMATION
  Report Type: Spontaneous
  Country: US (occurrence: US)
  Receive Date: 20200123
  Receipt Date: 20200123
  Transmission Date: 20200409
  Serious: No
  Sender: FDA-Public Use
  Company Number: US-B.I. PHARMACEUTICALS,INC./RIDGEFIELD-2020-US-003089

PATIENT
  Sex: Female

DRUGS (1)
  1. JARDIANCE [Suspect]
     Active Substance: EMPAGLIFLOZIN
     Indication: PRODUCT USED FOR UNKNOWN INDICATION
     Dosage: I TAKE IT EVERY MORNING WITH A WATER PILL
     Route: 065
     Dates: start: 20191223

REACTIONS (5)
  - Erythema [Unknown]
  - Eye allergy [Unknown]
  - Dyspepsia [Unknown]
  - Pruritus [Unknown]
  - Eye pruritus [Unknown]
